FAERS Safety Report 8083848-4 (Version None)
Quarter: 2012Q1

REPORT INFORMATION
  Report Type: 
  Country: None (occurrence: None)
  Receive Date: 20120128
  Receipt Date: 20110207
  Transmission Date: 20120608
  Serious: No
  Sender: FDA-Public Use
  Company Number: US-ABBOTT-11P-163-0703077-00

PATIENT
  Sex: Female
  Weight: 95.34 kg

DRUGS (2)
  1. HUMIRA [Suspect]
     Indication: RHEUMATOID ARTHRITIS
     Route: 058
     Dates: start: 20100601, end: 20110204
  2. HUMIRA [Suspect]
     Route: 058
     Dates: start: 20070101, end: 20100401

REACTIONS (3)
  - ARTHRALGIA [None]
  - HERPES ZOSTER [None]
  - NEURALGIA [None]
